FAERS Safety Report 14216032 (Version 2)
Quarter: 2017Q4

REPORT INFORMATION
  Report Type: Spontaneous
  Country: US (occurrence: US)
  Receive Date: 20171122
  Receipt Date: 20171204
  Transmission Date: 20180321
  Serious: Yes (Other)
  Sender: FDA-Public Use
  Company Number: US-BAYER-2017-226234

PATIENT

DRUGS (2)
  1. ALEVE [Suspect]
     Active Substance: NAPROXEN SODIUM
     Indication: INGUINAL HERNIA
     Dosage: 4 DF, UNK
     Dates: start: 20171125, end: 20171125
  2. ALEVE [Suspect]
     Active Substance: NAPROXEN SODIUM
     Indication: INGUINAL HERNIA
     Dosage: 2 DF, UNK

REACTIONS (5)
  - Product use issue [Unknown]
  - Dyspepsia [Unknown]
  - Product use in unapproved indication [Unknown]
  - Drug ineffective [Unknown]
  - Renal injury [Unknown]

NARRATIVE: CASE EVENT DATE: 20171125
